FAERS Safety Report 20763773 (Version 1)
Quarter: 2022Q2

REPORT INFORMATION
  Report Type: Spontaneous
  Country: US (occurrence: US)
  Receive Date: 20220428
  Receipt Date: 20220428
  Transmission Date: 20220721
  Serious: No
  Sender: FDA-Public Use
  Company Number: US-PFIZER INC-202200622517

PATIENT

DRUGS (1)
  1. PAXLOVID [Suspect]
     Active Substance: NIRMATRELVIR\RITONAVIR
     Indication: COVID-19 treatment
     Dosage: UNK

REACTIONS (7)
  - Gastrooesophageal reflux disease [Unknown]
  - Taste disorder [Unknown]
  - Product taste abnormal [Unknown]
  - Faeces pale [Unknown]
  - Anxiety [Unknown]
  - Pain [Unknown]
  - Incorrect product administration duration [Unknown]
